FAERS Safety Report 9862991 (Version 1)
Quarter: 2014Q1

REPORT INFORMATION
  Report Type: Report from Study
  Country: TW (occurrence: TW)
  Receive Date: 20140203
  Receipt Date: 20140203
  Transmission Date: 20141002
  Serious: No
  Sender: FDA-Public Use
  Company Number: PHHY2014TW012556

PATIENT
  Age: 84 Year
  Sex: Female

DRUGS (96)
  1. AMN107 [Suspect]
     Dates: start: 20111123
  2. KCL [Concomitant]
     Indication: RENAL FAILURE CHRONIC
     Dates: start: 20121110, end: 20121111
  3. KCL [Concomitant]
     Dates: start: 20121222, end: 20121223
  4. ACETAMINOPHEN [Concomitant]
     Indication: EYELID DISORDER
     Dates: start: 20120620, end: 20120623
  5. ACETAMINOPHEN [Concomitant]
     Indication: ABDOMINAL PAIN
     Dates: start: 20121223, end: 20121226
  6. ACETYLSALICYLIC ACID [Concomitant]
     Indication: PROPHYLAXIS
     Dates: start: 20111212
  7. ACTRAPID HM//INSULIN HUMAN [Concomitant]
     Indication: DIABETES MELLITUS
     Dates: start: 20121110, end: 20121111
  8. ACTRAPID HM//INSULIN HUMAN [Concomitant]
     Dates: start: 20121130, end: 20121202
  9. ACTRAPID HUMAN [Concomitant]
     Indication: DIABETES MELLITUS
     Dates: start: 20121103, end: 20121104
  10. ACTRAPID HUMAN [Concomitant]
     Dates: start: 20121110, end: 20121111
  11. ALPRAZOLAM [Concomitant]
     Indication: ADJUSTMENT DISORDER
     Dates: start: 20111221
  12. AMINOL-RF [Concomitant]
     Indication: RENAL FAILURE CHRONIC
     Dates: start: 20121110, end: 20121111
  13. BETAMETHASONE [Concomitant]
     Indication: SEBORRHOEIC DERMATITIS
     Dates: start: 20120118
  14. BROWN MIXTURE                      /01682301/ [Concomitant]
     Indication: COUGH
     Dates: start: 20121202, end: 20121212
  15. BUSCOPAN [Concomitant]
     Indication: GASTROENTERITIS
     Dates: start: 20121223, end: 20121223
  16. CEFAZOLIN [Concomitant]
     Indication: HEPATITIS
     Dates: start: 20121109, end: 20121111
  17. CEFAZOLIN [Concomitant]
     Indication: PREMEDICATION
     Dates: start: 20121130, end: 20121130
  18. CEFLEXIN [Concomitant]
     Indication: EYELID DISORDER
     Dates: start: 20120620, end: 20120623
  19. CELECOXIB [Concomitant]
     Indication: ABDOMINAL PAIN
     Dates: start: 20121104, end: 20121104
  20. CEPHALEXIN [Concomitant]
     Indication: GASTROOESOPHAGEAL REFLUX DISEASE
     Dates: start: 20121112, end: 20121119
  21. CHLORPHENIRAMIN [Concomitant]
     Indication: PROPHYLAXIS
     Dates: start: 20111212, end: 20111212
  22. CHLORPHENIRAMIN [Concomitant]
     Indication: PREMEDICATION
     Dates: start: 20120118, end: 20120118
  23. CHLORPHENIRAMIN [Concomitant]
     Dates: start: 20120215, end: 20120215
  24. CHLORPHENIRAMIN [Concomitant]
     Dates: start: 20120411, end: 20120411
  25. CHLORPHENIRAMIN [Concomitant]
     Dates: start: 20120530, end: 20120530
  26. CHLORPHENIRAMIN [Concomitant]
     Dates: start: 20120718, end: 20120718
  27. CHLORPHENIRAMIN [Concomitant]
     Dates: start: 20121009, end: 20121009
  28. CHLORPHENIRAMIN [Concomitant]
     Dates: start: 20130130, end: 20130130
  29. CHLORPHENIRAMIN [Concomitant]
     Dates: start: 20130514, end: 20130514
  30. CHLORPHENIRAMIN [Concomitant]
     Dates: start: 20130802, end: 20130802
  31. CHLORPHENIRAMIN [Concomitant]
     Dates: start: 20131004, end: 20131004
  32. CLOPIDOGREL [Concomitant]
     Indication: CORONARY ARTERY DISEASE
     Dates: start: 20111207, end: 20111212
  33. DICLOFENAC [Concomitant]
     Indication: WOUND COMPLICATION
     Dates: start: 20121130, end: 20121130
  34. DIPHENHYDRAMINE [Concomitant]
     Indication: PREMEDICATION
     Dates: start: 20120118, end: 20120118
  35. DIPHENHYDRAMINE [Concomitant]
     Indication: URTICARIA
     Dates: start: 20120118, end: 20120620
  36. FLUMETHOLON [Concomitant]
     Indication: CONJUNCTIVITIS
     Dates: start: 20120514, end: 20120611
  37. FUROSEMIDE [Concomitant]
     Indication: PREMEDICATION
     Dates: start: 20120118, end: 20120118
  38. FUROSEMIDE [Concomitant]
     Dates: start: 20120215, end: 20120215
  39. FUROSEMIDE [Concomitant]
     Dates: start: 20120411, end: 20120411
  40. FUROSEMIDE [Concomitant]
     Dates: start: 20120718, end: 20120718
  41. FUROSEMIDE [Concomitant]
     Dates: start: 20121009, end: 20121009
  42. FUROSEMIDE [Concomitant]
     Dates: start: 20130130, end: 20130130
  43. FUROSEMIDE [Concomitant]
     Dates: start: 20130514, end: 20130514
  44. FUROSEMIDE [Concomitant]
     Dates: start: 20130802, end: 20130802
  45. FUROSEMIDE [Concomitant]
     Dates: start: 20131004, end: 20131004
  46. GASCON [Concomitant]
     Indication: ABDOMINAL PAIN
     Dates: start: 20121103, end: 20121103
  47. GASCON [Concomitant]
     Dates: start: 20121119, end: 20121203
  48. GENTAMYCINE [Concomitant]
     Indication: EYELID DISORDER
     Dates: start: 20120620, end: 20120627
  49. HYDROCORTISONE [Concomitant]
     Indication: PREMEDICATION
     Dates: start: 20120118, end: 20120118
  50. HYDROCORTISONE [Concomitant]
     Indication: PROPHYLAXIS
     Dates: start: 20120215, end: 20120215
  51. HYDROCORTISONE [Concomitant]
     Dates: start: 20120411, end: 20120411
  52. HYDROCORTISONE [Concomitant]
     Dates: start: 20120530, end: 20120530
  53. HYDROCORTISONE [Concomitant]
     Dates: start: 20120718, end: 20120718
  54. HYDROCORTISONE [Concomitant]
     Dates: start: 20121009, end: 20121009
  55. HYDROCORTISONE [Concomitant]
     Dates: start: 20130130, end: 20130130
  56. HYDROCORTISONE [Concomitant]
     Dates: start: 20130514, end: 20130514
  57. HYDROCORTISONE [Concomitant]
     Dates: start: 20130802, end: 20130802
  58. HYDROCORTISONE [Concomitant]
     Dates: start: 20121004, end: 20121004
  59. ISOSORBID MONONITRATE [Concomitant]
     Indication: PROPHYLAXIS
     Dates: start: 20111221
  60. ISOSORBIDE DINITRATE [Concomitant]
     Indication: PROPHYLAXIS
     Dates: start: 20111212, end: 20111212
  61. KAOPECTIN [Concomitant]
     Indication: GASTROENTERITIS
     Dates: start: 20121222, end: 20121226
  62. KINGMIN [Concomitant]
     Indication: DRY EYE
     Dates: start: 20120514, end: 20120611
  63. LABETALOL [Concomitant]
     Indication: HYPERTENSION
     Dates: start: 20121223, end: 20121223
  64. LANSOPRAZOLE [Concomitant]
     Indication: GASTROOESOPHAGEAL REFLUX DISEASE
     Dates: start: 20121106, end: 20121112
  65. LANSOPRAZOLE [Concomitant]
     Dates: start: 20121112, end: 20121119
  66. LOPERAMIDE [Concomitant]
     Indication: GASTROENTERITIS
     Dates: start: 20121222, end: 20121222
  67. MAGNESIUM OXIDE [Concomitant]
     Indication: ABDOMINAL PAIN
     Dates: start: 20121103, end: 20121109
  68. MAGNESIUM OXIDE [Concomitant]
     Indication: ABDOMINAL PAIN UPPER
     Dates: start: 20121119, end: 20121212
  69. MEBEVERINE [Concomitant]
     Indication: GASTROENTERITIS
     Dates: start: 20121223, end: 20121226
  70. MEPERIDINE [Concomitant]
     Indication: WOUND COMPLICATION
     Dates: start: 20121130, end: 20121130
  71. MIDAZOLAM [Concomitant]
     Indication: ABDOMINAL PAIN UPPER
     Dates: start: 20121109, end: 20121109
  72. NEOMYCIN [Concomitant]
     Indication: SCRATCH
     Dates: start: 20130226, end: 20130305
  73. NITROGLYCERIN [Concomitant]
     Indication: PROPHYLAXIS
     Dates: start: 20111207
  74. NORVASC [Concomitant]
     Indication: HYPERTENSION
     Dates: start: 20111211, end: 20111212
  75. NORVASC [Concomitant]
     Dates: start: 20111221
  76. ORPHENADRINE [Concomitant]
     Indication: ADJUSTMENT DISORDER
     Dosage: UNK
     Dates: start: 20111221
  77. ORPHENADRINE [Concomitant]
     Dates: start: 20111221, end: 20120104
  78. PANTOPRAZOLE [Concomitant]
     Indication: GASTROOESOPHAGEAL REFLUX DISEASE
     Dates: start: 20121119, end: 20121203
  79. POLYTAR [Concomitant]
     Indication: ECZEMA
     Dates: start: 20120118
  80. PRIMPERAN [Concomitant]
     Indication: ABDOMINAL PAIN
     Dates: start: 20121103, end: 20121104
  81. PRIMPERAN [Concomitant]
     Indication: GASTROENTERITIS
     Dates: start: 20121222, end: 20121223
  82. RANITIDINE [Concomitant]
     Indication: ABDOMINAL PAIN
     Dates: start: 20121104, end: 20121104
  83. ROSUVASTATIN [Concomitant]
     Indication: HYPERCHOLESTEROLAEMIA
     Dates: start: 20111221
  84. SENOKOT//SENNA ALEXANDRINA [Concomitant]
     Indication: CONSTIPATION
     Dates: start: 20121103, end: 20121103
  85. SENOKOT//SENNA ALEXANDRINA [Concomitant]
     Dates: start: 20121110, end: 20121119
  86. SENOKOT//SENNA ALEXANDRINA [Concomitant]
     Dates: start: 20121201, end: 20121212
  87. SODIUM PHOSPHATE [Concomitant]
     Indication: CONSTIPATION
     Dates: start: 20121107, end: 20121107
  88. SODIUM PHOSPHATE [Concomitant]
     Indication: PREMEDICATION
     Dates: start: 20121129, end: 20121129
  89. SUCRALFATE [Concomitant]
     Indication: GASTROOESOPHAGEAL REFLUX DISEASE
     Dates: start: 20121110, end: 20121110
  90. TIMEPIDIUM [Concomitant]
     Indication: ABDOMINAL PAIN UPPER
     Dates: start: 20121119, end: 20121126
  91. TRAMADOL [Concomitant]
     Indication: ABDOMINAL PAIN
     Dates: start: 20121104, end: 20121109
  92. ULTRACET [Concomitant]
     Indication: ABDOMINAL PAIN
     Dates: start: 20121107, end: 20121108
  93. ULTRACET [Concomitant]
     Dates: start: 20121112, end: 20121119
  94. ULTRACET [Concomitant]
     Dates: start: 20121121, end: 20121128
  95. URSODESOXYCHOLIC ACID [Concomitant]
     Indication: CHOLELITHIASIS
     Dates: start: 20121119, end: 20121203
  96. VALSARTAN [Concomitant]
     Indication: HYPERTENSION
     Dates: start: 20111221

REACTIONS (1)
  - Gastroenteritis [Unknown]
